FAERS Safety Report 6545180-7 (Version None)
Quarter: 2010Q1

REPORT INFORMATION
  Report Type: 
  Country: None (occurrence: None)
  Receive Date: 20100115
  Receipt Date: 20100112
  Transmission Date: 20100710
  Serious: No
  Sender: FDA-Public Use
  Company Number: 474352

PATIENT
  Age: 49 Year
  Sex: Male

DRUGS (1)
  1. ONDANSETRON [Suspect]
     Indication: DRUG USE FOR UNKNOWN INDICATION
     Dosage: 4MG, ONCE, INTRAVENOUS
     Route: 042
     Dates: start: 20091201, end: 20091201

REACTIONS (2)
  - DYSGEUSIA [None]
  - THROAT IRRITATION [None]
